FAERS Safety Report 11906195 (Version 1)
Quarter: 2016Q1

REPORT INFORMATION
  Report Type: Spontaneous
  Country: US (occurrence: None)
  Receive Date: 20160108
  Receipt Date: 20160108
  Transmission Date: 20160526
  Serious: Yes (Life-Threatening)
  Sender: FDA-Public Use
  Company Number: None

PATIENT
  Age: 81 Year
  Sex: Male
  Weight: 117.94 kg

DRUGS (27)
  1. PROTONIX [Concomitant]
     Active Substance: PANTOPRAZOLE SODIUM
  2. ATORVASTATIN [Concomitant]
     Active Substance: ATORVASTATIN
  3. FISH OIL [Concomitant]
     Active Substance: FISH OIL
  4. VITAMIN B12 [Concomitant]
     Active Substance: CYANOCOBALAMIN
  5. ASPIRIN. [Concomitant]
     Active Substance: ASPIRIN
  6. VITAMIN D3 [Concomitant]
     Active Substance: CHOLECALCIFEROL
  7. KETACONAZOLE [Concomitant]
     Active Substance: KETOCONAZOLE
  8. SORIATANE [Concomitant]
     Active Substance: ACITRETIN
  9. METFORMIN [Concomitant]
     Active Substance: METFORMIN HYDROCHLORIDE
  10. RESTASIS [Concomitant]
     Active Substance: CYCLOSPORINE
  11. BIOTIN [Concomitant]
     Active Substance: BIOTIN
  12. LUTEIN + ZEAXANTHIN [Concomitant]
  13. ^MATURE^ MULTIVITAMIN [Concomitant]
  14. SYNTHROID [Concomitant]
     Active Substance: LEVOTHYROXINE SODIUM
  15. BENTYL [Concomitant]
     Active Substance: DICYCLOMINE HYDROCHLORIDE
  16. CLOBEX [Concomitant]
     Active Substance: CLOBETASOL PROPIONATE
  17. BETAMETHASONE VALERATE. [Concomitant]
     Active Substance: BETAMETHASONE VALERATE
  18. KELP IODINE [Concomitant]
  19. HYDROCORTISONE. [Concomitant]
     Active Substance: HYDROCORTISONE
  20. OTEZLA [Suspect]
     Active Substance: APREMILAST
     Indication: PSORIATIC ARTHROPATHY
     Route: 048
     Dates: start: 20151120, end: 20151128
  21. LISINOPRIL. [Concomitant]
     Active Substance: LISINOPRIL
  22. RAPAFLO [Concomitant]
     Active Substance: SILODOSIN
  23. UBIQUINOL (COQ10) [Concomitant]
  24. FLUOXETINE [Concomitant]
     Active Substance: FLUOXETINE HYDROCHLORIDE
  25. CLOBEX [Concomitant]
     Active Substance: CLOBETASOL PROPIONATE
  26. LANTUS [Concomitant]
     Active Substance: INSULIN GLARGINE
  27. BETAMETHASONE DIPROPIONATE CREAM [Concomitant]

REACTIONS (1)
  - Suicidal ideation [None]

NARRATIVE: CASE EVENT DATE: 20151128
